FAERS Safety Report 22612638 (Version 1)
Quarter: 2023Q2

REPORT INFORMATION
  Report Type: Report from Study
  Country: MX (occurrence: MX)
  Receive Date: 20230617
  Receipt Date: 20230617
  Transmission Date: 20230721
  Serious: Yes (Other)
  Sender: FDA-Public Use
  Company Number: MX-002147023-NVSC2023MX127327

PATIENT
  Age: 49 Year
  Sex: Female
  Weight: 75 kg

DRUGS (8)
  1. IMATINIB [Suspect]
     Active Substance: IMATINIB
     Indication: Chronic myeloid leukaemia
     Dosage: 400 MG, QD
     Route: 048
     Dates: start: 202005, end: 202103
  2. DASATINIB [Suspect]
     Active Substance: DASATINIB
     Indication: Product used for unknown indication
     Dosage: UNK
     Route: 065
  3. DASATINIB [Suspect]
     Active Substance: DASATINIB
     Dosage: UNK
     Route: 065
     Dates: start: 2021, end: 202210
  4. PREDNISONE [Suspect]
     Active Substance: PREDNISONE
     Indication: Liver injury
     Dosage: 50 MG, QD, (FOR 2 MONTHS)
     Route: 048
     Dates: start: 2021, end: 2022
  5. PREDNISONE [Suspect]
     Active Substance: PREDNISONE
     Dosage: 50 MG, TID, ( FOR 1 MONTH)
     Route: 048
  6. PREDNISONE [Suspect]
     Active Substance: PREDNISONE
     Dosage: 50 MG, QD, (FOR 1 MONTHS)
     Route: 048
  7. ALPRAZOLAM [Concomitant]
     Active Substance: ALPRAZOLAM
     Indication: Anxiety
     Dosage: 0.50 MG, QD
     Route: 048
     Dates: start: 202002
  8. ALPRAZOLAM [Concomitant]
     Active Substance: ALPRAZOLAM
     Dosage: 0.25 MG, QD
     Route: 048

REACTIONS (16)
  - Liver injury [Recovered/Resolved]
  - Pleural effusion [Unknown]
  - Pericardial effusion [Unknown]
  - Cushing^s syndrome [Unknown]
  - Hypersensitivity [Unknown]
  - Vomiting [Recovered/Resolved]
  - Diarrhoea [Recovered/Resolved]
  - Gastritis [Recovered/Resolved]
  - Abdominal pain [Recovered/Resolved]
  - Menstrual disorder [Not Recovered/Not Resolved]
  - Fluid retention [Unknown]
  - Blood glucose increased [Unknown]
  - Dizziness [Unknown]
  - Pain in extremity [Unknown]
  - Lymphadenitis [Unknown]
  - Weight increased [Unknown]

NARRATIVE: CASE EVENT DATE: 20200601
